FAERS Safety Report 20947271 (Version 2)
Quarter: 2022Q2

REPORT INFORMATION
  Report Type: Spontaneous
  Country: US (occurrence: US)
  Receive Date: 20220610
  Receipt Date: 20220616
  Transmission Date: 20220721
  Serious: No
  Sender: FDA-Public Use
  Company Number: US-LUNDBECK-DKLU3048646

PATIENT
  Age: 50 Year
  Sex: Female
  Weight: 98 kg

DRUGS (2)
  1. VYEPTI [Suspect]
     Active Substance: EPTINEZUMAB-JJMR
     Indication: Migraine
     Route: 041
     Dates: start: 20220223, end: 20220524
  2. QULIPTA [Concomitant]
     Active Substance: ATOGEPANT
     Indication: Product used for unknown indication
     Dosage: NIGHTLY
     Route: 065

REACTIONS (8)
  - Feeling abnormal [Unknown]
  - Nausea [Unknown]
  - Photophobia [Unknown]
  - Rhinorrhoea [Recovered/Resolved]
  - Oropharyngeal pain [Recovered/Resolved]
  - Hyperacusis [Unknown]
  - Headache [Unknown]
  - Drug ineffective [Unknown]
